FAERS Safety Report 9541952 (Version 1)
Quarter: 2013Q3

REPORT INFORMATION
  Report Type: Spontaneous
  Country: VN (occurrence: VN)
  Receive Date: 20130923
  Receipt Date: 20130923
  Transmission Date: 20140515
  Serious: Yes (Hospitalization)
  Sender: FDA-Public Use
  Company Number: PHHY2013VN105090

PATIENT
  Age: 55 Year
  Sex: Female
  Weight: 50 kg

DRUGS (2)
  1. ACLASTA [Suspect]
     Indication: OSTEOPOROSIS
     Dosage: 5 MG,PER YEAR
     Route: 042
     Dates: start: 20130918, end: 20130918
  2. JOINTFLEX                          /01758701/ [Concomitant]
     Indication: OSTEOARTHRITIS
     Dosage: 1500 MG, DAILY
     Route: 048
     Dates: start: 20130910

REACTIONS (3)
  - Hypotension [Recovered/Resolved]
  - Chest pain [Recovered/Resolved]
  - Fatigue [Recovered/Resolved]
